FAERS Safety Report 21205673 (Version 1)
Quarter: 2022Q3

REPORT INFORMATION
  Report Type: Spontaneous
  Country: US (occurrence: US)
  Receive Date: 20220812
  Receipt Date: 20220812
  Transmission Date: 20221027
  Serious: Yes (Other)
  Sender: FDA-Public Use
  Company Number: US-Hikma Pharmaceuticals USA Inc.-US-H14001-22-01996

PATIENT
  Sex: Female

DRUGS (1)
  1. PREDNISONE [Suspect]
     Active Substance: PREDNISONE
     Indication: Product used for unknown indication
     Dosage: UNKNOWN
     Route: 065

REACTIONS (15)
  - Thrombosis [Unknown]
  - Pulmonary embolism [Unknown]
  - Systemic lupus erythematosus [Unknown]
  - Blood cholesterol increased [Unknown]
  - Thyroid disorder [Unknown]
  - Anxiety [Unknown]
  - Spondylitis [Unknown]
  - Stomatitis [Unknown]
  - Influenza like illness [Unknown]
  - Swollen tongue [Unknown]
  - Peripheral swelling [Unknown]
  - Arthralgia [Unknown]
  - Peripheral coldness [Unknown]
  - Blue toe syndrome [Unknown]
  - Treatment noncompliance [Unknown]
